FAERS Safety Report 12780591 (Version 1)
Quarter: 2016Q3

REPORT INFORMATION
  Report Type: Spontaneous
  Country: FR (occurrence: FR)
  Receive Date: 20160926
  Receipt Date: 20160926
  Transmission Date: 20161109
  Serious: Yes (Hospitalization)
  Sender: FDA-Public Use
  Company Number: FR-PFIZER INC-2016432784

PATIENT
  Age: 63 Year
  Sex: Male

DRUGS (5)
  1. SOLU-MEDROL [Suspect]
     Active Substance: METHYLPREDNISOLONE SODIUM SUCCINATE
     Indication: COLORECTAL CANCER METASTATIC
     Dosage: 60 MG, DAILY
     Route: 041
     Dates: start: 20160824, end: 20160824
  2. AVASTIN [Suspect]
     Active Substance: BEVACIZUMAB
     Indication: COLORECTAL CANCER METASTATIC
     Dosage: 150 MG, DAILY
     Route: 041
     Dates: start: 20160824, end: 20160824
  3. LEVOFOLINATE CALCIUM [Suspect]
     Active Substance: LEVOLEUCOVORIN CALCIUM
     Indication: COLORECTAL CANCER METASTATIC
     Dosage: 400 MG, DAILY
     Route: 041
     Dates: start: 20160824, end: 20160824
  4. SETOFILM [Suspect]
     Active Substance: ONDANSETRON
     Indication: COLORECTAL CANCER METASTATIC
     Dosage: 8 MG, DAILY
     Route: 048
     Dates: start: 20160824, end: 20160824
  5. OXALIPLATIN. [Suspect]
     Active Substance: OXALIPLATIN
     Indication: COLORECTAL CANCER METASTATIC
     Dosage: 150 MG, DAILY
     Route: 041
     Dates: start: 20160824, end: 20160824

REACTIONS (1)
  - Pyrexia [Recovered/Resolved]

NARRATIVE: CASE EVENT DATE: 20160824
